FAERS Safety Report 7666043-X (Version None)
Quarter: 2011Q3

REPORT INFORMATION
  Report Type: 
  Country: None (occurrence: None)
  Receive Date: 20110806
  Receipt Date: 20110504
  Transmission Date: 20111222
  Serious: No
  Sender: FDA-Public Use
  Company Number: US-ABBOTT-11P-163-0723693-00

PATIENT
  Sex: Male
  Weight: 126.21 kg

DRUGS (5)
  1. NIASPAN [Suspect]
     Indication: CEREBROVASCULAR STENOSIS
     Dates: start: 20090101, end: 20100101
  2. ALLEGRA [Concomitant]
     Indication: HYPERSENSITIVITY
  3. NIASPAN [Suspect]
     Dosage: 1500MG DAILY
     Dates: start: 20100101
  4. METOPROLOL TARTRATE [Concomitant]
     Indication: HYPERTENSION
  5. LIPITOR [Concomitant]
     Indication: BLOOD CHOLESTEROL INCREASED

REACTIONS (2)
  - FLUSHING [None]
  - PRURITUS [None]
